FAERS Safety Report 17228217 (Version 1)
Quarter: 2020Q1

REPORT INFORMATION
  Report Type: Spontaneous
  Country: GB (occurrence: GB)
  Receive Date: 20200103
  Receipt Date: 20200103
  Transmission Date: 20200409
  Serious: Yes (Other)
  Sender: FDA-Public Use
  Company Number: GB-ACCORD-168069

PATIENT
  Age: 79 Year
  Sex: Male

DRUGS (2)
  1. QUINIDINE [Suspect]
     Active Substance: QUINIDINE
     Indication: PRODUCT USED FOR UNKNOWN INDICATION
     Dosage: 600 MILLIGRAM DAILY;
     Route: 065
     Dates: start: 2017
  2. ATORVASTATIN/ATORVASTATIN CALCIUM [Suspect]
     Active Substance: ATORVASTATIN CALCIUM
     Indication: PRODUCT USED FOR UNKNOWN INDICATION
     Route: 065
     Dates: start: 2017

REACTIONS (7)
  - Cinchonism [Unknown]
  - Depression [Unknown]
  - Product prescribing error [Unknown]
  - Tremor [Unknown]
  - Rhabdomyolysis [Unknown]
  - Immobile [Unknown]
  - Essential tremor [Unknown]

NARRATIVE: CASE EVENT DATE: 20170523
